FAERS Safety Report 24059855 (Version 4)
Quarter: 2024Q4

REPORT INFORMATION
  Report Type: Spontaneous
  Country: US (occurrence: US)
  Receive Date: 20240708
  Receipt Date: 20241118
  Transmission Date: 20250115
  Serious: No
  Sender: SANOFI AVENTIS
  Company Number: US-SA-SAC20240702000593

PATIENT
  Age: 67 Year
  Sex: Male

DRUGS (1)
  1. DUPIXENT [Suspect]
     Active Substance: DUPILUMAB
     Indication: Dermatitis atopic
     Dosage: 300 MG, QOW
     Route: 058

REACTIONS (8)
  - Ear disorder [Unknown]
  - Eye disorder [Unknown]
  - Eye pain [Unknown]
  - Periorbital pain [Unknown]
  - Eye discharge [Recovered/Resolved]
  - Dry skin [Not Recovered/Not Resolved]
  - Pain of skin [Unknown]
  - Dry eye [Recovered/Resolved]

NARRATIVE: CASE EVENT DATE: 20230101
